FAERS Safety Report 13269378 (Version 2)
Quarter: 2017Q1

REPORT INFORMATION
  Report Type: Spontaneous
  Country: US (occurrence: US)
  Receive Date: 20170224
  Receipt Date: 20170323
  Transmission Date: 20170428
  Serious: Yes (Other)
  Sender: FDA-Public Use
  Company Number: US-PFIZER INC-2017075581

PATIENT
  Age: 58 Year
  Sex: Female

DRUGS (2)
  1. IBRANCE [Suspect]
     Active Substance: PALBOCICLIB
     Indication: BREAST CANCER
     Dosage: 75 MG, CYCLIC (1 CAPSULE ONCE DAILY, 21 DAYS ON 7 DAYS OFF)
     Dates: start: 20161015, end: 20170214
  2. AROMASIN [Concomitant]
     Active Substance: EXEMESTANE
     Dosage: UNK
     Dates: start: 201610

REACTIONS (7)
  - Mental impairment [Recovering/Resolving]
  - Anxiety [Unknown]
  - Neoplasm progression [Unknown]
  - Paranoia [Unknown]
  - Fatigue [Not Recovered/Not Resolved]
  - Constipation [Recovering/Resolving]
  - Muscle spasms [Unknown]
